FAERS Safety Report 7302806-8 (Version None)
Quarter: 2011Q1

REPORT INFORMATION
  Report Type: 
  Country: None (occurrence: None)
  Receive Date: 20110218
  Receipt Date: 20110215
  Transmission Date: 20110831
  Serious: Yes (Death, Other)
  Sender: FDA-Public Use
  Company Number: US-CEPHALON-2011000770

PATIENT
  Age: 64 Year
  Sex: Male

DRUGS (5)
  1. DEXAMETHASONE [Suspect]
  2. BENDAMUSTINE HCL [Suspect]
     Indication: MULTIPLE MYELOMA
     Route: 042
  3. DEXAMETHASONE [Suspect]
  4. LENALIDOMIDE [Concomitant]
  5. CYCLOPHOSPHAMIDE [Concomitant]

REACTIONS (2)
  - ACUTE HEPATIC FAILURE [None]
  - HEPATITIS B [None]
